FAERS Safety Report 5700158-8 (Version None)
Quarter: 2008Q2

REPORT INFORMATION
  Report Type: 
  Country: None (occurrence: None)
  Receive Date: 20080410
  Receipt Date: 20080331
  Transmission Date: 20081010
  Serious: Yes (Hospitalization)
  Sender: FDA-Public Use
  Company Number: BR-ABBOTT-08P-020-0443500-00

PATIENT
  Sex: Male
  Weight: 70 kg

DRUGS (5)
  1. HUMIRA [Suspect]
     Indication: CROHN'S DISEASE
     Route: 058
     Dates: end: 20080301
  2. HUMIRA [Suspect]
     Dates: start: 20071107
  3. OMEPRAZOLE [Concomitant]
     Indication: PROPHYLAXIS AGAINST GASTROINTESTINAL ULCER
     Route: 048
  4. MESALAMINE [Concomitant]
     Indication: CROHN'S DISEASE
     Dates: start: 20060901
  5. SUCRALFATE [Concomitant]
     Indication: PROPHYLAXIS AGAINST GASTROINTESTINAL ULCER

REACTIONS (8)
  - ABDOMINAL PAIN [None]
  - ABDOMINAL PAIN UPPER [None]
  - CROHN'S DISEASE [None]
  - DIARRHOEA [None]
  - DRUG INEFFECTIVE [None]
  - ILEITIS [None]
  - VOMITING [None]
  - WHITE BLOOD CELL COUNT INCREASED [None]
